FAERS Safety Report 4641325-4 (Version None)
Quarter: 2005Q2

REPORT INFORMATION
  Report Type: 
  Country: None (occurrence: None)
  Receive Date: 20050421
  Receipt Date: 20050415
  Transmission Date: 20051028
  Serious: Yes (Death, Life-Threatening, Hospitalization, Disabling)
  Sender: FDA-Public Use
  Company Number: US-MERCK-0504USA02496

PATIENT
  Age: 85 Year
  Sex: Male

DRUGS (1)
  1. FOSAMAX [Suspect]
     Route: 048

REACTIONS (3)
  - ASPIRATION [None]
  - DEATH [None]
  - OESOPHAGEAL DISCOMFORT [None]
